FAERS Safety Report 24670752 (Version 2)
Quarter: 2025Q1

REPORT INFORMATION
  Report Type: Report from Study
  Country: US (occurrence: US)
  Receive Date: 20241127
  Receipt Date: 20250303
  Transmission Date: 20250409
  Serious: Yes (Other)
  Sender: TAKEDA
  Company Number: US-TAKEDA-2024TUS068208

PATIENT
  Sex: Female

DRUGS (3)
  1. IXAZOMIB [Suspect]
     Active Substance: IXAZOMIB
     Indication: Plasma cell myeloma
  2. IXAZOMIB [Suspect]
     Active Substance: IXAZOMIB
  3. DEXAMETHASONE [Concomitant]
     Active Substance: DEXAMETHASONE

REACTIONS (26)
  - Plasma cell myeloma [Unknown]
  - Epistaxis [Unknown]
  - Fatigue [Unknown]
  - Paraesthesia [Unknown]
  - Burning sensation [Unknown]
  - Vulvovaginal discomfort [Unknown]
  - Musculoskeletal discomfort [Unknown]
  - Chills [Unknown]
  - Peripheral coldness [Unknown]
  - Feeling cold [Unknown]
  - Urinary tract infection [Unknown]
  - Inflammation [Not Recovered/Not Resolved]
  - Blister [Not Recovered/Not Resolved]
  - Swelling [Unknown]
  - Hiccups [Unknown]
  - Gastrooesophageal reflux disease [Unknown]
  - Pain in extremity [Not Recovered/Not Resolved]
  - Pruritus [Unknown]
  - Insomnia [Not Recovered/Not Resolved]
  - Cystitis [Unknown]
  - Ear infection [Unknown]
  - Peripheral swelling [Unknown]
  - Full blood count decreased [Unknown]
  - Diarrhoea [Unknown]
  - Rash [Unknown]
  - Oedema peripheral [Unknown]
